FAERS Safety Report 5140507-5 (Version None)
Quarter: 2006Q4

REPORT INFORMATION
  Report Type: 
  Country: None (occurrence: None)
  Receive Date: 20061025
  Receipt Date: 20061018
  Transmission Date: 20070319
  Serious: Yes (Death)
  Sender: FDA-Public Use
  Company Number: 056-C5013-06100866

PATIENT
  Age: 73 Year
  Sex: Female

DRUGS (2)
  1. CC-5013 (LENALIDOMIDE)   (CAPSULES) REVLIMID [Suspect]
     Indication: MULTIPLE MYELOMA
     Dosage: 25 MG, 1 IN 1 D, ORAL
     Route: 048
     Dates: start: 20060809, end: 20061007
  2. DEXAMETHASONE TAB [Suspect]
     Indication: MULTIPLE MYELOMA
     Dosage: 40 MG, 1 IN 1 D, ORAL
     Route: 048

REACTIONS (1)
  - DEATH [None]
